FAERS Safety Report 25644074 (Version 2)
Quarter: 2025Q3

REPORT INFORMATION
  Report Type: Spontaneous
  Country: US (occurrence: US)
  Receive Date: 20250805
  Receipt Date: 20250808
  Transmission Date: 20251020
  Serious: Yes (Other)
  Sender: RANBAXY
  Company Number: US-SUN PHARMACEUTICAL INDUSTRIES INC-2025R1-520762

PATIENT
  Age: 69 Year
  Sex: Female

DRUGS (1)
  1. LITHIUM [Suspect]
     Active Substance: LITHIUM
     Indication: Schizoaffective disorder
     Dosage: 300 MILLIGRAM, BID
     Route: 065

REACTIONS (5)
  - Drug level increased [Unknown]
  - Electrocardiogram QT prolonged [Recovering/Resolving]
  - Muscular weakness [Recovering/Resolving]
  - Mental status changes [Recovering/Resolving]
  - Toxicity to various agents [Unknown]
